FAERS Safety Report 15979614 (Version 1)
Quarter: 2019Q1

REPORT INFORMATION
  Report Type: Spontaneous
  Country: US (occurrence: US)
  Receive Date: 20190124
  Receipt Date: 20190124
  Transmission Date: 20190418
  Serious: No
  Sender: FDA-Public Use
  Company Number: None

PATIENT
  Age: 82 Year
  Sex: Female

DRUGS (3)
  1. BROMSITE [Suspect]
     Active Substance: BROMFENAC SODIUM
     Indication: CATARACT OPERATION
     Dates: start: 20190118
  2. BROMSITE [Suspect]
     Active Substance: BROMFENAC SODIUM
     Indication: PREOPERATIVE CARE
     Dates: start: 20190118
  3. GATIFLOXACIN. [Suspect]
     Active Substance: GATIFLOXACIN
     Dosage: ?          OTHER FREQUENCY:QID ;?
     Dates: start: 20190118

REACTIONS (3)
  - Ear discomfort [None]
  - Erythema [None]
  - Pruritus [None]

NARRATIVE: CASE EVENT DATE: 20190123
